FAERS Safety Report 17748433 (Version 1)
Quarter: 2020Q2

REPORT INFORMATION
  Report Type: Report from Study
  Country: DE (occurrence: DE)
  Receive Date: 20200506
  Receipt Date: 20200506
  Transmission Date: 20200714
  Serious: Yes (Hospitalization, Other)
  Sender: FDA-Public Use
  Company Number: DE-BIOGEN-2020BI00869290

PATIENT
  Sex: Female

DRUGS (2)
  1. PLEGRIDY [Suspect]
     Active Substance: PEGINTERFERON BETA-1A
     Indication: MULTIPLE SCLEROSIS
     Route: 058
     Dates: start: 20150629
  2. HEMP SEED OIL [Concomitant]
     Active Substance: CANNABIS SATIVA SEED OIL
     Indication: ANTIINFLAMMATORY THERAPY
     Route: 065

REACTIONS (4)
  - Human papilloma virus test positive [Not Recovered/Not Resolved]
  - Injection site erythema [Not Recovered/Not Resolved]
  - Multiple sclerosis relapse [Recovered/Resolved]
  - Feeling of body temperature change [Recovered/Resolved]

NARRATIVE: CASE EVENT DATE: 2015
